FAERS Safety Report 7915939-X (Version None)
Quarter: 2011Q4

REPORT INFORMATION
  Report Type: 
  Country: None (occurrence: None)
  Receive Date: 20111115
  Receipt Date: 20111103
  Transmission Date: 20120403
  Serious: Yes (Other)
  Sender: FDA-Public Use
  Company Number: US-RB-030321-11

PATIENT
  Sex: Female

DRUGS (4)
  1. SUBOXONE [Suspect]
     Indication: DRUG DEPENDENCE
     Route: 060
     Dates: start: 20100517, end: 20110101
  2. SUBUTEX [Suspect]
     Indication: DRUG DEPENDENCE
     Route: 060
     Dates: start: 20110501
  3. SUBUTEX [Suspect]
     Route: 060
     Dates: start: 20110201, end: 20110501
  4. SUBUTEX [Suspect]
     Route: 060
     Dates: start: 20110101, end: 20110201

REACTIONS (2)
  - ANAESTHETIC COMPLICATION [None]
  - MATERNAL EXPOSURE DURING PREGNANCY [None]
